FAERS Safety Report 4710204-6 (Version None)
Quarter: 2005Q3

REPORT INFORMATION
  Report Type: 
  Country: None (occurrence: None)
  Receive Date: 20050709
  Receipt Date: 20050630
  Transmission Date: 20060218
  Serious: Yes (Death, Life-Threatening, Hospitalization)
  Sender: FDA-Public Use
  Company Number: CA-MERCK-0507CAN00003

PATIENT
  Age: 71 Year
  Sex: Male
  Weight: 74 kg

DRUGS (5)
  1. PROSCAR [Suspect]
     Indication: BENIGN PROSTATIC HYPERPLASIA
     Route: 048
     Dates: end: 20041201
  2. THIAMINE [Concomitant]
     Indication: DRUG WITHDRAWAL SYNDROME
     Route: 042
     Dates: start: 20041214, end: 20041219
  3. DIAZEPAM [Concomitant]
     Indication: AGITATION
     Route: 042
     Dates: start: 20041214, end: 20041219
  4. HALOPERIDOL [Concomitant]
     Route: 030
     Dates: start: 20041216, end: 20041219
  5. LACTULOSE [Concomitant]
     Indication: ALCOHOLISM
     Route: 048
     Dates: start: 20041215, end: 20041219

REACTIONS (1)
  - HEPATIC ENCEPHALOPATHY [None]
